FAERS Safety Report 6360119-5 (Version None)
Quarter: 2009Q3

REPORT INFORMATION
  Report Type: 
  Country: None (occurrence: None)
  Receive Date: 20090917
  Receipt Date: 20090914
  Transmission Date: 20100115
  Serious: Yes (Death, Other)
  Sender: FDA-Public Use
  Company Number: PHHY2009JP15361

PATIENT
  Sex: Female
  Weight: 57 kg

DRUGS (5)
  1. ZOMETA [Suspect]
     Indication: METASTASES TO BONE
     Dosage: 4 MG (PER ADMINISTRATION)
     Route: 042
     Dates: start: 20061117, end: 20080508
  2. FLUOROURACIL [Concomitant]
     Indication: BREAST CANCER
     Dosage: 400 MG UNK
     Route: 042
     Dates: start: 20061122, end: 20070522
  3. FARMORUBICIN [Concomitant]
     Indication: BREAST CANCER
     Dosage: 80 MG, UNK
     Route: 042
     Dates: start: 20061122, end: 20070522
  4. CYCLOPHOSPHAMIDE [Concomitant]
     Indication: BREAST CANCER
     Dosage: 400 MG, UNK
     Route: 042
     Dates: start: 20061122, end: 20070522
  5. TAXOL [Concomitant]
     Indication: BREAST CANCER
     Dosage: 110 MG, UNK
     Route: 042
     Dates: start: 20070913, end: 20080417

REACTIONS (11)
  - BONE LESION [None]
  - DENTAL CLEANING [None]
  - FISTULA [None]
  - MALIGNANT NEOPLASM PROGRESSION [None]
  - OSTEONECROSIS [None]
  - PAIN IN JAW [None]
  - PURULENT DISCHARGE [None]
  - SWELLING [None]
  - TOOTH DISORDER [None]
  - TOOTH LOSS [None]
  - TOOTHACHE [None]
